FAERS Safety Report 4347985-X (Version None)
Quarter: 2004Q2

REPORT INFORMATION
  Report Type: 
  Country: None (occurrence: None)
  Receive Date: 20040422
  Receipt Date: 20040331
  Transmission Date: 20050107
  Serious: Yes (Other)
  Sender: FDA-Public Use
  Company Number: 2004207590GB

PATIENT
  Age: 62 Year
  Sex: Female
  Weight: 60 kg

DRUGS (6)
  1. SULFASALAZINE [Suspect]
     Indication: RHEUMATOID ARTHRITIS
     Dosage: 50MG/DAY, ORAL
     Route: 048
     Dates: start: 20040303, end: 20040308
  2. FLUOXETINE [Suspect]
     Indication: DEPRESSION
     Dosage: 20MG/DAY
     Dates: start: 20040228, end: 20040309
  3. CELECOXIB [Concomitant]
  4. CO-CODAMOL [Concomitant]
  5. LANSOPRAZOLE [Concomitant]
  6. ACETAMINOPHEN [Concomitant]

REACTIONS (4)
  - CONFUSIONAL STATE [None]
  - HYPERTENSION [None]
  - LETHARGY [None]
  - PALPITATIONS [None]
